FAERS Safety Report 8326764-2 (Version None)
Quarter: 2012Q2

REPORT INFORMATION
  Report Type: 
  Country: None (occurrence: None)
  Receive Date: 20120501
  Receipt Date: 20120420
  Transmission Date: 20120825
  Serious: Yes (Other)
  Sender: FDA-Public Use
  Company Number: FR-PFIZER INC-2012104667

PATIENT
  Age: 88 Year
  Sex: Female

DRUGS (10)
  1. EZETIMIBE [Concomitant]
     Dosage: UNK
  2. RAMIPRIL [Suspect]
     Dosage: 5 MG, UNK
     Route: 048
  3. DILTIAZEM HCL [Concomitant]
     Dosage: UNK
  4. PRIMIDONE [Concomitant]
     Dosage: UNK
  5. DURAGESIC-100 [Concomitant]
     Dosage: UNK
     Dates: start: 20111201
  6. ASPIRIN [Concomitant]
     Dosage: UNK
  7. LEXOMIL [Concomitant]
     Dosage: UNK
  8. TRIMEBUTINE [Concomitant]
     Dosage: UNK
  9. TRANSIPEG [Concomitant]
     Dosage: UNK
  10. ACETAMINOPHEN [Concomitant]
     Dosage: UNK

REACTIONS (2)
  - GAMMA-GLUTAMYLTRANSFERASE INCREASED [None]
  - HYPERKALAEMIA [None]
